FAERS Safety Report 25091984 (Version 1)
Quarter: 2025Q1

REPORT INFORMATION
  Report Type: Spontaneous
  Country: US (occurrence: US)
  Receive Date: 20250318
  Receipt Date: 20250318
  Transmission Date: 20250409
  Serious: Yes (Hospitalization, Other)
  Sender: BRISTOL-MYERS SQUIBB COMPANY
  Company Number: US-BRISTOL-MYERS SQUIBB COMPANY-2025-036056

PATIENT
  Age: 49 Year
  Sex: Male
  Weight: 62.4 kg

DRUGS (1)
  1. REVLIMID [Suspect]
     Active Substance: LENALIDOMIDE
     Indication: Plasma cell myeloma
     Dosage: FREQUENCY: Q DAY FOR 21/28 DAYS
     Route: 048
     Dates: start: 202502

REACTIONS (6)
  - Arthralgia [Unknown]
  - Mental disorder [Unknown]
  - Seizure [Unknown]
  - Balance disorder [Unknown]
  - Mobility decreased [Unknown]
  - Inappropriate schedule of product administration [Unknown]
